FAERS Safety Report 4751272-5 (Version None)
Quarter: 2005Q3

REPORT INFORMATION
  Report Type: 
  Country: None (occurrence: None)
  Receive Date: 20050824
  Receipt Date: 20050815
  Transmission Date: 20060218
  Serious: Yes (Other)
  Sender: FDA-Public Use
  Company Number: CA-JNJFOC-20050506571

PATIENT
  Sex: Male
  Weight: 80.29 kg

DRUGS (14)
  1. REMICADE [Suspect]
     Dosage: 10TH INFUSION
     Route: 042
  2. REMICADE [Suspect]
     Dosage: 9TH INFUSION
     Route: 042
  3. REMICADE [Suspect]
     Dosage: 8TH INFUSION
     Route: 042
  4. REMICADE [Suspect]
     Dosage: 7TH INFUSION
     Route: 042
  5. REMICADE [Suspect]
     Dosage: 6TH INFUSION
     Route: 042
  6. REMICADE [Suspect]
     Dosage: 5TH INFUSION
     Route: 042
  7. REMICADE [Suspect]
     Dosage: PATIENT RECEIVED FOUR INFUSIONS
     Route: 042
  8. REMICADE [Suspect]
     Indication: CROHN'S DISEASE
     Route: 042
  9. BENADRYL [Concomitant]
     Indication: PREMEDICATION
     Route: 048
  10. PREDNISONE [Concomitant]
     Indication: PREMEDICATION
     Route: 048
  11. MESALAMINE [Concomitant]
     Indication: CROHN'S DISEASE
     Dosage: 6 TABS QD; (TRADE NAME: SALOFALK)
     Route: 048
  12. CIPROFLOXACIN HCL [Concomitant]
     Indication: CROHN'S DISEASE
     Dosage: 500 BID
     Route: 048
  13. IMURAN [Concomitant]
     Indication: CROHN'S DISEASE
     Route: 048
  14. LOPERAMIDE [Concomitant]
     Indication: CROHN'S DISEASE
     Dosage: 2 TABLETS QD
     Route: 048

REACTIONS (2)
  - HERPES ZOSTER [None]
  - INTESTINAL OPERATION [None]
